FAERS Safety Report 8102134-7 (Version None)
Quarter: 2012Q1

REPORT INFORMATION
  Report Type: 
  Country: None (occurrence: None)
  Receive Date: 20120131
  Receipt Date: 20120120
  Transmission Date: 20120608
  Serious: Yes (Death)
  Sender: FDA-Public Use
  Company Number: DE-TEVA-319343GER

PATIENT
  Age: 71 Year
  Sex: Male
  Weight: 87 kg

DRUGS (16)
  1. LANTUS [Concomitant]
     Dosage: 6 IU (INTERNATIONAL UNIT);
     Route: 058
  2. SYMBICORT [Concomitant]
     Dosage: 18 MICROGRAM;
     Route: 055
  3. TAMSULOSIN HCL [Concomitant]
     Dosage: .4 MILLIGRAM;
  4. METAMIZOL [Concomitant]
     Dosage: 1500 MILLIGRAM;
  5. SPIRIVA [Concomitant]
     Dosage: 18 MICROGRAM;
  6. METHYLPREDNISOLONE [Concomitant]
     Indication: RENAL TRANSPLANT
     Dosage: 4 MILLIGRAM;
  7. SANDIMMUNE [Concomitant]
     Indication: RENAL TRANSPLANT
     Dosage: 150 MILLIGRAM;
  8. ONE ALPHA [Concomitant]
     Dosage: .25 MICROGRAM;
  9. MYCOPHENOLIC ACID [Suspect]
     Indication: RENAL TRANSPLANT
     Dosage: 500 MILLIGRAM;
     Route: 048
     Dates: start: 20111117
  10. TORSEMIDE [Concomitant]
     Dosage: 80 MILLIGRAM;
     Dates: end: 20120101
  11. TORSEMIDE [Concomitant]
     Dosage: 150 MILLIGRAM;
     Dates: end: 20111201
  12. ETZETROL [Concomitant]
     Dosage: 10 MILLIGRAM;
  13. ASPIRIN [Concomitant]
     Dosage: 100 MILLIGRAM;
  14. TORSEMIDE [Concomitant]
     Dosage: 120 MILLIGRAM;
     Dates: start: 20120101
  15. METOCLOPRAMIDE [Concomitant]
     Dosage: 16 MILLIGRAM;
  16. OMEPRAZOLE [Concomitant]
     Dosage: 40 MILLIGRAM;

REACTIONS (3)
  - DRY THROAT [None]
  - OEDEMA PERIPHERAL [None]
  - SUDDEN DEATH [None]
